FAERS Safety Report 8959243 (Version 3)
Quarter: 2013Q1

REPORT INFORMATION
  Report Type: Spontaneous
  Country: DE (occurrence: DE)
  Receive Date: 20121212
  Receipt Date: 20130131
  Transmission Date: 20140127
  Serious: No
  Sender: FDA-Public Use
  Company Number: DE-ROCHE-1167953

PATIENT
  Sex: Female

DRUGS (2)
  1. LUCENTIS [Suspect]
     Indication: AGE-RELATED MACULAR DEGENERATION
     Route: 065
     Dates: start: 20120718
  2. LUCENTIS [Suspect]
     Route: 065
     Dates: start: 20121218

REACTIONS (2)
  - Retinal oedema [Unknown]
  - Visual acuity reduced [Unknown]
